FAERS Safety Report 18898951 (Version 1)
Quarter: 2021Q1

REPORT INFORMATION
  Report Type: Spontaneous
  Country: US (occurrence: US)
  Receive Date: 20210215
  Receipt Date: 20210215
  Transmission Date: 20210420
  Serious: Yes (Disabling)
  Sender: FDA-Public Use
  Company Number: None

PATIENT
  Age: 37 Year
  Sex: Female
  Weight: 79.2 kg

DRUGS (5)
  1. NURTEC ODT [Concomitant]
     Active Substance: RIMEGEPANT SULFATE
  2. CLARITIN?D NOS [Concomitant]
     Active Substance: LORATADINE\PSEUDOEPHEDRINE SULFATE
  3. EMGALITY [Suspect]
     Active Substance: GALCANEZUMAB-GNLM
     Indication: MIGRAINE
     Dosage: ?          QUANTITY:1 INJECTION(S);OTHER FREQUENCY:1 INJECTION/MONTH;?
     Route: 058
     Dates: start: 20201111, end: 20210211
  4. PHENERGAN [Concomitant]
     Active Substance: PROMETHAZINE HYDROCHLORIDE
  5. BENADRYL [Concomitant]
     Active Substance: DIPHENHYDRAMINE HYDROCHLORIDE

REACTIONS (5)
  - Muscular weakness [None]
  - Visual impairment [None]
  - Dizziness [None]
  - Impaired work ability [None]
  - Fatigue [None]

NARRATIVE: CASE EVENT DATE: 20201111
